FAERS Safety Report 17293353 (Version 1)
Quarter: 2020Q1

REPORT INFORMATION
  Report Type: Spontaneous
  Country: US (occurrence: US)
  Receive Date: 20200121
  Receipt Date: 20200121
  Transmission Date: 20200409
  Serious: Yes (Life-Threatening, Hospitalization, Other)
  Sender: FDA-Public Use
  Company Number: US-ACCORD-170347

PATIENT
  Age: 67 Year
  Sex: Male

DRUGS (6)
  1. HALOPERIDOL. [Suspect]
     Active Substance: HALOPERIDOL
     Indication: DELIRIUM
     Dosage: UP TO 25 MG ENTERALLY EVERY 12 HOURS AND 5 MG INTRAVENOUSLY EVERY 6 HOURS RESPECTIVELY
     Route: 042
  2. HALOPERIDOL. [Suspect]
     Active Substance: HALOPERIDOL
     Indication: DELIRIUM
     Dosage: UP TO 25 MG ENTERALLY EVERY 12 HOURS AND 5 MG INTRAVENOUSLY EVERY 6 HOURS RESPECTIVELY
  3. MIDAZOLAM HYDROCHLORIDE. [Suspect]
     Active Substance: MIDAZOLAM HYDROCHLORIDE
     Indication: SEDATION
  4. QUETIAPINE. [Suspect]
     Active Substance: QUETIAPINE
     Indication: DELIRIUM
     Dosage: ESCALATING DOSES
  5. HYDROMORPHONE/HYDROMORPHONE HYDROCHLORIDE [Suspect]
     Active Substance: HYDROMORPHONE
     Indication: SEDATION
  6. HALOPERIDOL. [Suspect]
     Active Substance: HALOPERIDOL
     Indication: DELIRIUM
     Dosage: UP TO 25 MG ENTERALLY EVERY 12 HOURS AND 5 MG INTRAVENOUSLY EVERY 6 HOURS RESPECTIVELY

REACTIONS (3)
  - Delirium [Unknown]
  - Off label use [Unknown]
  - Parkinsonism [Recovered/Resolved]
